FAERS Safety Report 19825886 (Version 1)
Quarter: 2021Q3

REPORT INFORMATION
  Report Type: Spontaneous
  Country: ZA (occurrence: ZA)
  Receive Date: 20210914
  Receipt Date: 20210914
  Transmission Date: 20211014
  Serious: Yes (Hospitalization)
  Sender: FDA-Public Use
  Company Number: ZA-LUPIN PHARMACEUTICALS INC.-2021-17015

PATIENT
  Age: 22 Year
  Sex: Female

DRUGS (5)
  1. MISOPROSTOL. [Suspect]
     Active Substance: MISOPROSTOL
     Indication: POSTPARTUM HAEMORRHAGE
     Dosage: UNK
     Route: 065
  2. ERGOMETRINE [Suspect]
     Active Substance: ERGONOVINE MALEATE
     Indication: POSTPARTUM HAEMORRHAGE
     Dosage: UNK
     Route: 065
  3. MISOPROSTOL. [Suspect]
     Active Substance: MISOPROSTOL
     Indication: UTERINE ATONY
  4. OXYTOCIN. [Suspect]
     Active Substance: OXYTOCIN
     Indication: POSTPARTUM HAEMORRHAGE
     Dosage: UNK
     Route: 065
  5. ERGOMETRINE [Suspect]
     Active Substance: ERGONOVINE MALEATE
     Indication: UTERINE ATONY

REACTIONS (2)
  - Off label use [Unknown]
  - Drug ineffective [Unknown]
